FAERS Safety Report 13714312 (Version 2)
Quarter: 2017Q3

REPORT INFORMATION
  Report Type: Report from Study
  Country: JP (occurrence: JP)
  Receive Date: 20170704
  Receipt Date: 20170725
  Transmission Date: 20171127
  Serious: Yes (Hospitalization)
  Sender: FDA-Public Use
  Company Number: JP-ACTELION-A-CH2017-151504

PATIENT
  Age: 67 Year
  Sex: Male

DRUGS (17)
  1. TRAZENTA [Concomitant]
     Active Substance: LINAGLIPTIN
  2. SAMSCA [Suspect]
     Active Substance: TOLVAPTAN
     Indication: RIGHT VENTRICULAR FAILURE
     Dosage: 7.5 MG, QD
     Route: 048
  3. OXYGEN. [Concomitant]
     Active Substance: OXYGEN
  4. LASIX [Concomitant]
     Active Substance: FUROSEMIDE
  5. CRESTOR [Concomitant]
     Active Substance: ROSUVASTATIN CALCIUM
  6. OPSUMIT [Suspect]
     Active Substance: MACITENTAN
     Indication: PULMONARY ARTERIAL HYPERTENSION
     Dosage: 10 MG, QD
     Route: 048
     Dates: start: 20160607
  7. SAMSCA [Suspect]
     Active Substance: TOLVAPTAN
     Dosage: UNK, QD
     Route: 048
  8. SAMSCA [Suspect]
     Active Substance: TOLVAPTAN
     Dosage: 7.5 MG, QD
     Route: 048
  9. ADCIRCA [Concomitant]
     Active Substance: TADALAFIL
  10. WARFARIN [Concomitant]
     Active Substance: WARFARIN
  11. ADALAT [Concomitant]
     Active Substance: NIFEDIPINE
  12. NU-LOTAN [Concomitant]
     Active Substance: LOSARTAN POTASSIUM
  13. REVATIO [Concomitant]
     Active Substance: SILDENAFIL CITRATE
  14. AMARYL [Concomitant]
     Active Substance: GLIMEPIRIDE
  15. UPTRAVI [Suspect]
     Active Substance: SELEXIPAG
     Indication: PULMONARY ARTERIAL HYPERTENSION
     Dosage: 3.75 MG, QD
     Route: 048
     Dates: start: 20170128, end: 20170206
  16. BERASUS [Concomitant]
     Active Substance: BERAPROST SODIUM
  17. ZYLORIC [Concomitant]
     Active Substance: ALLOPURINOL

REACTIONS (7)
  - Weight increased [Recovering/Resolving]
  - Generalised oedema [Recovering/Resolving]
  - Cardiac failure [Recovering/Resolving]
  - Pleural effusion [Recovering/Resolving]
  - Diarrhoea [Recovering/Resolving]
  - Oliguria [Recovering/Resolving]
  - Treatment noncompliance [Unknown]

NARRATIVE: CASE EVENT DATE: 20170118
